FAERS Safety Report 9235806 (Version 1)
Quarter: 2013Q2

REPORT INFORMATION
  Report Type: Spontaneous
  Country: US (occurrence: None)
  Receive Date: 20130416
  Receipt Date: 20130416
  Transmission Date: 20140414
  Serious: Yes (Disabling)
  Sender: FDA-Public Use
  Company Number: None

PATIENT
  Age: 32 Year
  Sex: Female

DRUGS (1)
  1. LUPRON [Suspect]
     Indication: ENDOMETRIOSIS
     Dosage: 11.25 MG EVERY 3 MONTHS IM
     Route: 030
     Dates: start: 20120814, end: 20121114

REACTIONS (3)
  - Cognitive disorder [None]
  - Dysphonia [None]
  - Musculoskeletal disorder [None]
